FAERS Safety Report 9792448 (Version 1)
Quarter: 2014Q1

REPORT INFORMATION
  Report Type: Spontaneous
  Country: US (occurrence: US)
  Receive Date: 20140102
  Receipt Date: 20140102
  Transmission Date: 20141002
  Serious: No
  Sender: FDA-Public Use
  Company Number: US-BIOGENIDEC-2013BI123353

PATIENT
  Age: 71 Year
  Sex: Female

DRUGS (5)
  1. TECFIDERA [Suspect]
     Indication: MULTIPLE SCLEROSIS
     Route: 048
     Dates: start: 20130530
  2. RANITIDINE [Concomitant]
  3. SINGULAIR [Concomitant]
  4. XANAX [Concomitant]
  5. MUCINEX D [Concomitant]

REACTIONS (1)
  - Alopecia [Not Recovered/Not Resolved]
